FAERS Safety Report 12552981 (Version 1)
Quarter: 2016Q3

REPORT INFORMATION
  Report Type: Report from Study
  Country: BR (occurrence: BR)
  Receive Date: 20160713
  Receipt Date: 20160713
  Transmission Date: 20161109
  Serious: Yes (Other)
  Sender: FDA-Public Use
  Company Number: BR-JNJFOC-20160706855

PATIENT
  Sex: Male

DRUGS (3)
  1. REMICADE [Suspect]
     Active Substance: INFLIXIMAB
     Indication: PSORIATIC ARTHROPATHY
     Route: 042
     Dates: end: 2016
  2. GLIFAGE [Concomitant]
     Active Substance: METFORMIN HYDROCHLORIDE
     Route: 065
  3. REMICADE [Suspect]
     Active Substance: INFLIXIMAB
     Indication: PSORIATIC ARTHROPATHY
     Dosage: FREQUENCY: EVERY 2 OR 3 MONTHS
     Route: 042
     Dates: start: 2013, end: 201512

REACTIONS (6)
  - Blister [Recovered/Resolved]
  - Off label use [Unknown]
  - Tooth extraction [Recovered/Resolved]
  - Product use issue [Unknown]
  - Hypersensitivity [Recovered/Resolved]
  - Flavivirus infection [Unknown]

NARRATIVE: CASE EVENT DATE: 2013
